FAERS Safety Report 4510493-7 (Version None)
Quarter: 2004Q4

REPORT INFORMATION
  Report Type: 
  Country: None (occurrence: None)
  Receive Date: 20041122
  Receipt Date: 20041116
  Transmission Date: 20050328
  Serious: Yes (Life-Threatening, Hospitalization)
  Sender: FDA-Public Use
  Company Number: TPA2004A01429

PATIENT
  Age: 60 Year
  Sex: Female

DRUGS (1)
  1. ACTOS [Suspect]

REACTIONS (3)
  - CARDIAC ARREST [None]
  - FLUID RETENTION [None]
  - OEDEMA [None]
